FAERS Safety Report 4970891-4 (Version None)
Quarter: 2006Q2

REPORT INFORMATION
  Report Type: 
  Country: None (occurrence: None)
  Receive Date: 20060406
  Receipt Date: 20060329
  Transmission Date: 20061013
  Serious: Yes (Other)
  Sender: FDA-Public Use
  Company Number: 200610357BYL

PATIENT
  Age: 87 Year
  Sex: Female

DRUGS (4)
  1. ADALAT [Suspect]
     Indication: HYPERTENSION
     Dosage: 20 MG, QD, ORAL
     Route: 048
  2. ASPIRIN [Concomitant]
  3. ALLELOCK [Concomitant]
  4. SELBEX [Concomitant]

REACTIONS (5)
  - ERYTHEMA [None]
  - FEELING ABNORMAL [None]
  - OEDEMA PERIPHERAL [None]
  - PALPITATIONS [None]
  - SWELLING FACE [None]
